FAERS Safety Report 7360945-X (Version None)
Quarter: 2011Q1

REPORT INFORMATION
  Report Type: 
  Country: None (occurrence: None)
  Receive Date: 20110318
  Receipt Date: 20110316
  Transmission Date: 20110831
  Serious: Yes (Other)
  Sender: FDA-Public Use
  Company Number: JP-ELI_LILLY_AND_COMPANY-JP201103005096

PATIENT
  Age: 63 Year
  Sex: Male

DRUGS (4)
  1. FOLIC ACID [Concomitant]
  2. ALIMTA [Suspect]
     Indication: NON-SMALL CELL LUNG CANCER
     Dosage: 500 MG/M2, OTHER
     Route: 042
     Dates: start: 20110314
  3. CISPLATIN [Concomitant]
     Indication: NON-SMALL CELL LUNG CANCER
     Dosage: 75 MG/M2, OTHER
     Route: 042
     Dates: start: 20110314
  4. VITAMIN B-12 [Concomitant]

REACTIONS (1)
  - MECHANICAL ILEUS [None]
